FAERS Safety Report 4971372-4 (Version None)
Quarter: 2006Q2

REPORT INFORMATION
  Report Type: 
  Country: None (occurrence: None)
  Receive Date: 20060406
  Receipt Date: 20060324
  Transmission Date: 20061013
  Serious: Yes (Other)
  Sender: FDA-Public Use
  Company Number: 2006041828

PATIENT
  Age: 51 Year
  Sex: Male

DRUGS (5)
  1. NEURONTIN [Suspect]
     Indication: EPILEPSY
     Dosage: 1800 MG (DAILY), ORAL
     Route: 048
     Dates: start: 20060316
  2. PRIMIDONE [Suspect]
     Indication: ILL-DEFINED DISORDER
  3. FRISIUM (CLOBAZAM) [Concomitant]
  4. ENALAPRIL MALEATE [Concomitant]
  5. TORSEMIDE [Concomitant]

REACTIONS (2)
  - ALANINE AMINOTRANSFERASE INCREASED [None]
  - ASPARTATE AMINOTRANSFERASE INCREASED [None]
